FAERS Safety Report 7314792-5 (Version None)
Quarter: 2011Q1

REPORT INFORMATION
  Report Type: 
  Country: None (occurrence: None)
  Receive Date: 20110225
  Receipt Date: 20110110
  Transmission Date: 20110831
  Serious: No
  Sender: FDA-Public Use
  Company Number: US-MYLANLABS-2010S1022728

PATIENT
  Age: 19 Year
  Sex: Male
  Weight: 69.4 kg

DRUGS (1)
  1. AMNESTEEM [Suspect]
     Indication: ACNE
     Route: 048
     Dates: start: 20101115, end: 20101209

REACTIONS (3)
  - HEADACHE [None]
  - TINNITUS [None]
  - BACK PAIN [None]
